FAERS Safety Report 22839905 (Version 2)
Quarter: 2025Q1

REPORT INFORMATION
  Report Type: Report from Study
  Country: US (occurrence: US)
  Receive Date: 20230818
  Receipt Date: 20250321
  Transmission Date: 20250409
  Serious: Yes (Other)
  Sender: PFIZER
  Company Number: US-PFIZER INC-PV202300141591

PATIENT
  Age: 94 Year
  Sex: Male

DRUGS (10)
  1. VYNDAMAX [Suspect]
     Active Substance: TAFAMIDIS
     Indication: Acquired ATTR amyloidosis
     Dosage: TAKE 1 CAPSULE (61 MG TOTAL) BY MOUTH DAILY
     Route: 048
     Dates: start: 20210720
  2. ASPIRIN [Concomitant]
     Active Substance: ASPIRIN
  3. DILTIAZEM [Concomitant]
     Active Substance: DILTIAZEM
  4. ELIQUIS [Concomitant]
     Active Substance: APIXABAN
  5. FUROSEMIDE [Concomitant]
     Active Substance: FUROSEMIDE
  6. KLOR-CON M10 [Concomitant]
     Active Substance: POTASSIUM CHLORIDE
  7. METOPROLOL [Concomitant]
     Active Substance: METOPROLOL
  8. MIRTAZAPINE [Concomitant]
     Active Substance: MIRTAZAPINE
  9. SIMVASTATIN [Concomitant]
     Active Substance: SIMVASTATIN
  10. VITAMIN B12 [Concomitant]
     Active Substance: CYANOCOBALAMIN

REACTIONS (1)
  - Dysuria [Not Recovered/Not Resolved]
